FAERS Safety Report 6237481-7 (Version None)
Quarter: 2009Q2

REPORT INFORMATION
  Report Type: 
  Country: None (occurrence: None)
  Receive Date: 20090619
  Receipt Date: 20090124
  Transmission Date: 20091009
  Serious: No
  Sender: FDA-Public Use
  Company Number: US-AMGEN-KDL330103

PATIENT
  Sex: Male

DRUGS (3)
  1. NEUPOGEN [Suspect]
     Indication: CHEMOTHERAPY
     Dates: start: 20090121
  2. EPOGEN [Suspect]
     Indication: DIALYSIS
     Dates: start: 20090122
  3. ARANESP [Suspect]
     Indication: RENAL FAILURE CHRONIC
     Dates: start: 20090123

REACTIONS (2)
  - BONE PAIN [None]
  - HAEMOGLOBIN DECREASED [None]
